FAERS Safety Report 8173379-5 (Version None)
Quarter: 2012Q1

REPORT INFORMATION
  Report Type: 
  Country: None (occurrence: None)
  Receive Date: 20120229
  Receipt Date: 20120223
  Transmission Date: 20120608
  Serious: Yes (Other)
  Sender: FDA-Public Use
  Company Number: GB-ASTELLAS-2012EU001389

PATIENT
  Sex: Male

DRUGS (2)
  1. VESICARE [Suspect]
     Dosage: 10 MG, UNKNOWN/D
     Route: 065
     Dates: start: 20120101
  2. VESICARE [Suspect]
     Dosage: UNK
     Route: 065
     Dates: start: 20110101

REACTIONS (2)
  - BLOOD PRESSURE FLUCTUATION [None]
  - ARRHYTHMIA [None]
